FAERS Safety Report 6092233-6 (Version None)
Quarter: 2009Q1

REPORT INFORMATION
  Report Type: 
  Country: None (occurrence: None)
  Receive Date: 20090225
  Receipt Date: 20090220
  Transmission Date: 20090719
  Serious: Yes (Death, Hospitalization)
  Sender: FDA-Public Use
  Company Number: A0713044A

PATIENT
  Age: 61 Year
  Sex: Female

DRUGS (11)
  1. AVANDIA [Suspect]
     Dosage: 8MG PER DAY
     Route: 048
     Dates: start: 19990101, end: 20061017
  2. ALBUTEROL [Concomitant]
  3. THEOPHYLLINE [Concomitant]
  4. NEURONTIN [Concomitant]
  5. LORTAB [Concomitant]
  6. VICODIN [Concomitant]
  7. TOBRADEX [Concomitant]
  8. PRED FORTE [Concomitant]
  9. ZITHROMAX [Concomitant]
  10. KLOR-CON [Concomitant]
  11. TESSALON [Concomitant]

REACTIONS (2)
  - INJURY [None]
  - MYOCARDIAL INFARCTION [None]
